FAERS Safety Report 5091415-X (Version None)
Quarter: 2006Q3

REPORT INFORMATION
  Report Type: 
  Country: None (occurrence: None)
  Receive Date: 20060727
  Receipt Date: 20060423
  Transmission Date: 20061208
  Serious: Yes (Other)
  Sender: FDA-Public Use
  Company Number: 2006054152

PATIENT
  Age: 54 Year
  Sex: Male

DRUGS (3)
  1. LYRICA [Suspect]
     Indication: ILL-DEFINED DISORDER
     Dosage: 600 MG (UNKNOWN), UNKNOWN
  2. NEURONTIN [Concomitant]
  3. TEGRETOL [Concomitant]

REACTIONS (1)
  - RASH [None]
